FAERS Safety Report 15981335 (Version 1)
Quarter: 2019Q1

REPORT INFORMATION
  Report Type: Spontaneous
  Country: IT (occurrence: IT)
  Receive Date: 20190219
  Receipt Date: 20190219
  Transmission Date: 20190418
  Serious: Yes (Life-Threatening)
  Sender: FDA-Public Use
  Company Number: IT-TEVA-2019-IT-1013564

PATIENT
  Age: 66 Year
  Sex: Female

DRUGS (1)
  1. PACLITAXEL TEVA ITALIA [Suspect]
     Active Substance: PACLITAXEL
     Indication: BREAST ANGIOSARCOMA
     Route: 042
     Dates: start: 20181127, end: 20181228

REACTIONS (4)
  - Depressed level of consciousness [Recovered/Resolved]
  - Dyspnoea [Recovered/Resolved]
  - Flushing [Recovered/Resolved]
  - Pain [Recovered/Resolved]
